FAERS Safety Report 14822453 (Version 1)
Quarter: 2018Q2

REPORT INFORMATION
  Report Type: Spontaneous
  Country: NL (occurrence: NL)
  Receive Date: 20180427
  Receipt Date: 20180427
  Transmission Date: 20180711
  Serious: Yes (Other)
  Sender: FDA-Public Use
  Company Number: NL-PFIZER INC-2018168700

PATIENT
  Age: 19 Year
  Sex: Female
  Weight: 42 kg

DRUGS (1)
  1. LEVETIRACETAM. [Suspect]
     Active Substance: LEVETIRACETAM
     Indication: EPILEPSY
     Dosage: 1500 MG, DAILY
     Route: 050
     Dates: start: 201606, end: 2018

REACTIONS (3)
  - Fatigue [Unknown]
  - Renal impairment [Unknown]
  - Kidney small [Unknown]

NARRATIVE: CASE EVENT DATE: 2017
